FAERS Safety Report 12884114 (Version 3)
Quarter: 2017Q2

REPORT INFORMATION
  Report Type: Report from Study
  Country: ES (occurrence: ES)
  Receive Date: 20161026
  Receipt Date: 20170406
  Transmission Date: 20170830
  Serious: Yes (Disabling)
  Sender: FDA-Public Use
  Company Number: ES-ROCHE-1845478

PATIENT
  Age: 32 Year
  Sex: Female
  Weight: 55 kg

DRUGS (5)
  1. BENDAMUSTINE [Suspect]
     Active Substance: BENDAMUSTINE
     Indication: NON-HODGKIN^S LYMPHOMA UNSPECIFIED HISTOLOGY INDOLENT
     Dosage: MOST RECENT DOSE ON  10 AUG 2012, DOSE OF LAST BENDAMUSTINE TAKEN 153.9 MG
     Route: 042
     Dates: start: 20120321
  2. PREDNISONA [Concomitant]
     Active Substance: PREDNISONE
     Indication: INTESTINAL VILLI ATROPHY
     Route: 065
     Dates: start: 20160210
  3. RITUXIMAB [Suspect]
     Active Substance: RITUXIMAB
     Indication: NON-HODGKIN^S LYMPHOMA UNSPECIFIED HISTOLOGY INDOLENT
     Dosage: MOST RECENT DOSE ON 02 JUL 2014, VOLUME OF LAST RITUXIMAB TAKEN 641.25 ML, DOSE CONCENTRATION OF LA
     Route: 042
     Dates: start: 20120321
  4. KREON [Concomitant]
     Active Substance: PANCRELIPASE
     Indication: INTESTINAL VILLI ATROPHY
     Route: 065
     Dates: start: 20151214
  5. LEVOGASTROL [Concomitant]
     Indication: INTESTINAL VILLI ATROPHY
     Route: 065
     Dates: start: 20151214

REACTIONS (1)
  - Hypogammaglobulinaemia [Not Recovered/Not Resolved]

NARRATIVE: CASE EVENT DATE: 20160713
